FAERS Safety Report 7993687-8 (Version None)
Quarter: 2011Q4

REPORT INFORMATION
  Report Type: 
  Country: None (occurrence: None)
  Receive Date: 20111219
  Receipt Date: 20111028
  Transmission Date: 20120403
  Serious: Yes (Other)
  Sender: FDA-Public Use
  Company Number: PHHY2010CA86294

PATIENT
  Age: 16 Year
  Sex: Female
  Weight: 64 kg

DRUGS (9)
  1. ENALAPRIL MALEATE [Suspect]
     Indication: ALPORT'S SYNDROME
     Dosage: 0.8 MG/KG, QD
  2. ENALAPRIL MALEATE [Suspect]
     Dosage: 50 MG, BID
  3. FERROUS GLUCONATE [Concomitant]
     Dosage: 300 MG, TID
  4. RASILEZ [Suspect]
     Indication: PROTEINURIA
     Dosage: 2.4 MG/KG, QD
  5. RASILEZ [Suspect]
     Indication: ALPORT'S SYNDROME
     Dosage: 150 MG, DAILY
     Route: 048
     Dates: start: 20090219, end: 20090406
  6. HYZAAR [Concomitant]
     Dosage: 12.5/ 25 MG BID
  7. LOSARTAN POTASSIUM [Suspect]
  8. SIMESTATIN [Concomitant]
     Dosage: 20 MG,DAILY
  9. ROCALTROL [Concomitant]
     Dosage: 0.25 UG, 5QD

REACTIONS (4)
  - BLOOD UREA INCREASED [None]
  - RENAL IMPAIRMENT [None]
  - HYPERKALAEMIA [None]
  - BLOOD CREATININE INCREASED [None]
